FAERS Safety Report 16729945 (Version 1)
Quarter: 2019Q3

REPORT INFORMATION
  Report Type: Spontaneous
  Country: US (occurrence: US)
  Receive Date: 20190822
  Receipt Date: 20190822
  Transmission Date: 20191005
  Serious: Yes (Death)
  Sender: FDA-Public Use
  Company Number: US-VIFOR (INTERNATIONAL) INC.-VIT-2019-08138

PATIENT
  Sex: Female

DRUGS (1)
  1. VELPHORO [Suspect]
     Active Substance: FERRIC OXYHYDROXIDE
     Indication: END STAGE RENAL DISEASE
     Dosage: 4X500MG
     Dates: start: 20190123

REACTIONS (1)
  - Bradycardia [Fatal]

NARRATIVE: CASE EVENT DATE: 2019
